FAERS Safety Report 6360031-1 (Version None)
Quarter: 2009Q3

REPORT INFORMATION
  Report Type: 
  Country: None (occurrence: None)
  Receive Date: 20090917
  Receipt Date: 20090908
  Transmission Date: 20100115
  Serious: Yes (Hospitalization)
  Sender: FDA-Public Use
  Company Number: PHHY2009MX36003

PATIENT
  Age: 56 Year
  Sex: Female

DRUGS (3)
  1. EXFORGE [Suspect]
     Indication: HYPERTENSION
     Dosage: 0.5 TABLET (160/5 MG) DAILY
     Dates: start: 20090601
  2. OMEPRAZOLE [Concomitant]
  3. AVALIDE [Concomitant]

REACTIONS (2)
  - BREAST NEOPLASM [None]
  - MASTECTOMY [None]
